FAERS Safety Report 16886267 (Version 2)
Quarter: 2019Q4

REPORT INFORMATION
  Report Type: Report from Study
  Country: FR (occurrence: FR)
  Receive Date: 20191004
  Receipt Date: 20191010
  Transmission Date: 20200122
  Serious: Yes (Hospitalization)
  Sender: FDA-Public Use
  Company Number: FR-BAYER-2019-135044

PATIENT
  Age: 50 Year
  Sex: Female
  Weight: 46 kg

DRUGS (8)
  1. AVELUMAB [Suspect]
     Active Substance: AVELUMAB
     Indication: GASTRIC NEOPLASM
     Dosage: 460 MG
     Dates: start: 20190729, end: 20190909
  2. IZALGI [Concomitant]
     Active Substance: ACETAMINOPHEN\OPIUM
     Indication: PAIN
     Dosage: UNK
     Route: 048
  3. PARACETAMOL [Concomitant]
     Active Substance: ACETAMINOPHEN
  4. PAPAVER SOMNIFERUM;PARACETAMOL [Concomitant]
  5. LANSOPRAZOLE. [Concomitant]
     Active Substance: LANSOPRAZOLE
  6. PAPAVER SOMNIFERUM;PARACETAMOL [Concomitant]
  7. REGORAFENIB. [Suspect]
     Active Substance: REGORAFENIB
     Indication: GASTRIC NEOPLASM
     Dosage: 160 MG
     Route: 048
     Dates: start: 20190702, end: 20190910
  8. DESLORATADINE. [Concomitant]
     Active Substance: DESLORATADINE

REACTIONS (3)
  - Rash [Not Recovered/Not Resolved]
  - Cardiac failure acute [Not Recovered/Not Resolved]
  - Pyrexia [Recovered/Resolved]

NARRATIVE: CASE EVENT DATE: 20190711
